FAERS Safety Report 8357709-7 (Version None)
Quarter: 2012Q2

REPORT INFORMATION
  Report Type: 
  Country: None (occurrence: None)
  Receive Date: 20120514
  Receipt Date: 20120502
  Transmission Date: 20120825
  Serious: Yes (Death, Hospitalization)
  Sender: FDA-Public Use
  Company Number: CH-MERCK-1205USA00582

PATIENT
  Age: 88 Year
  Sex: Male

DRUGS (6)
  1. AMOXICILLIN AND CLAVULANATE POTASSIUM [Suspect]
     Route: 042
     Dates: start: 20120118, end: 20120124
  2. METOPROLOL TARTRATE AND HYDROCHLOROTHIAZIDE [Concomitant]
     Route: 048
     Dates: start: 20120117, end: 20120208
  3. PRIMAXIN [Suspect]
     Route: 042
     Dates: start: 20120129, end: 20120207
  4. TORSEMIDE [Concomitant]
     Route: 048
     Dates: start: 20120116, end: 20120117
  5. PROSCAR [Concomitant]
     Route: 048
     Dates: start: 20120116, end: 20120207
  6. EXFORGE [Concomitant]
     Route: 048
     Dates: start: 20120116, end: 20120118

REACTIONS (2)
  - DEATH [None]
  - PANCYTOPENIA [None]
